FAERS Safety Report 8388325 (Version 11)
Quarter: 2016Q2

REPORT INFORMATION
  Report Type: Spontaneous
  Country: US (occurrence: US)
  Receive Date: 20120203
  Receipt Date: 20160512
  Transmission Date: 20160815
  Serious: Yes (Hospitalization, Other)
  Sender: FDA-Public Use
  Company Number: US-GLAXOSMITHKLINE-A0939395A

PATIENT
  Age: 57 Year
  Sex: Male

DRUGS (7)
  1. LAMICTAL [Suspect]
     Active Substance: LAMOTRIGINE
     Indication: SEIZURE
     Dosage: 300 MG, BID
     Route: 048
     Dates: start: 2003
  2. LAMICTAL [Suspect]
     Active Substance: LAMOTRIGINE
     Indication: EPILEPSY
     Dosage: 400 MG, BID
  3. LAMICTAL [Suspect]
     Active Substance: LAMOTRIGINE
     Dosage: UNK
  4. PHENOBARBITAL. [Concomitant]
     Active Substance: PHENOBARBITAL
  5. LAMOTRIGINE. [Suspect]
     Active Substance: LAMOTRIGINE
     Indication: PRODUCT USED FOR UNKNOWN INDICATION
  6. EFFEXOR XR [Suspect]
     Active Substance: VENLAFAXINE HYDROCHLORIDE
     Indication: PRODUCT USED FOR UNKNOWN INDICATION
     Dosage: UNK
     Dates: start: 2004
  7. PAXIL [Suspect]
     Active Substance: PAROXETINE HYDROCHLORIDE
     Indication: PRODUCT USED FOR UNKNOWN INDICATION
     Dosage: UNK
     Dates: start: 2004

REACTIONS (21)
  - Neurological symptom [Unknown]
  - Drug ineffective [Unknown]
  - Amnesia [Unknown]
  - Cerebrovascular accident [Unknown]
  - Depression [Unknown]
  - Seizure [Unknown]
  - Suicidal ideation [Unknown]
  - Brain operation [Unknown]
  - Head injury [Unknown]
  - Dysphemia [Not Recovered/Not Resolved]
  - Post-traumatic stress disorder [Unknown]
  - Heat stroke [Unknown]
  - Delirium [Unknown]
  - Abnormal behaviour [Unknown]
  - Drug dose omission [Unknown]
  - Burns third degree [Unknown]
  - Wrong technique in product usage process [Unknown]
  - Emergency care examination [Unknown]
  - Overdose [Unknown]
  - Gait disturbance [Recovering/Resolving]
  - Product quality issue [Unknown]

NARRATIVE: CASE EVENT DATE: 1996
